FAERS Safety Report 9055342 (Version 1)
Quarter: 2013Q1

REPORT INFORMATION
  Report Type: Spontaneous
  Country: FR (occurrence: FR)
  Receive Date: 20130206
  Receipt Date: 20130206
  Transmission Date: 20140127
  Serious: Yes (Other)
  Sender: FDA-Public Use
  Company Number: FR-ROCHE-1187431

PATIENT
  Age: 47 None
  Sex: Male

DRUGS (7)
  1. XELODA [Suspect]
     Indication: RECTAL CANCER
     Dosage: FIRST CYCLE
     Route: 048
     Dates: start: 20120917, end: 20120921
  2. APROVEL [Concomitant]
  3. DUROGESIC [Concomitant]
  4. IRINOTECAN [Concomitant]
     Dosage: FIRST CYCLE
     Route: 065
     Dates: start: 20120917
  5. AVASTIN [Concomitant]
     Route: 065
  6. FOLIC ACID [Concomitant]
  7. 5-FU [Concomitant]

REACTIONS (1)
  - Dermatitis bullous [Recovered/Resolved]
